FAERS Safety Report 4373948-4 (Version None)
Quarter: 2004Q2

REPORT INFORMATION
  Report Type: 
  Country: None (occurrence: None)
  Receive Date: 20040601
  Receipt Date: 20040408
  Transmission Date: 20050107
  Serious: Yes (Hospitalization)
  Sender: FDA-Public Use
  Company Number: 138747USA

PATIENT
  Age: 19 Year
  Sex: Male
  Weight: 80 kg

DRUGS (2)
  1. IFOSFAMIDE [Suspect]
     Indication: SARCOMA
     Dosage: 2800 MG/M2 DAILY SUBCUTANEOUS
     Route: 058
     Dates: start: 20040331, end: 20040402
  2. ETOPOSIDE [Concomitant]

REACTIONS (3)
  - COORDINATION ABNORMAL [None]
  - DISORIENTATION [None]
  - DRUG TOXICITY [None]
